FAERS Safety Report 21158984 (Version 1)
Quarter: 2022Q3

REPORT INFORMATION
  Report Type: Spontaneous
  Country: US (occurrence: US)
  Receive Date: 20220802
  Receipt Date: 20220802
  Transmission Date: 20221026
  Serious: No
  Sender: FDA-Public Use
  Company Number: US-PRINSTON PHARMACEUTICAL INC.-2022PRN00214

PATIENT
  Age: 37 Year
  Sex: Female
  Weight: 58.957 kg

DRUGS (3)
  1. LISINOPRIL [Suspect]
     Active Substance: LISINOPRIL
     Indication: Hypertension
     Dosage: 10 MG (1 TABLET) ONCE DAILY
     Route: 048
     Dates: start: 202206, end: 202206
  2. LISINOPRIL [Suspect]
     Active Substance: LISINOPRIL
     Dosage: 1/2 TABLET (5 MG DOSE ONCE DAILY)
     Dates: start: 202206
  3. GENERIC ADDERALL EXTENDED- RELEASE (ANI Pharmaceuticals) [Concomitant]
     Dosage: 30 MG CAPSULE, 1X/DAY (SHE DOESN^T ALWAYS TAKE THE SAME AMOUNT. IT JUST DEPENDS ON WHAT SHE HAS GOIN

REACTIONS (22)
  - Coeliac disease [Recovering/Resolving]
  - Feeling abnormal [Recovering/Resolving]
  - Nausea [Recovering/Resolving]
  - Pain in extremity [Recovering/Resolving]
  - Somnolence [Recovering/Resolving]
  - Pain [Recovering/Resolving]
  - Gluten sensitivity [Recovering/Resolving]
  - Reaction to excipient [Recovering/Resolving]
  - Fall [Unknown]
  - Balance disorder [Unknown]
  - Eye contusion [Unknown]
  - Lip injury [Unknown]
  - Eye injury [Unknown]
  - Skin abrasion [Unknown]
  - Skin laceration [Unknown]
  - Memory impairment [Unknown]
  - Head injury [Unknown]
  - Concussion [Not Recovered/Not Resolved]
  - Arthralgia [Recovering/Resolving]
  - Dizziness [Recovering/Resolving]
  - Product dose omission issue [Recovered/Resolved]
  - Intentional product use issue [Not Recovered/Not Resolved]

NARRATIVE: CASE EVENT DATE: 20220601
